FAERS Safety Report 9457842 (Version 1)
Quarter: 2013Q3

REPORT INFORMATION
  Report Type: Report from Study
  Country: TW (occurrence: TW)
  Receive Date: 20130814
  Receipt Date: 20130814
  Transmission Date: 20140515
  Serious: Yes (Hospitalization)
  Sender: FDA-Public Use
  Company Number: TW-SANOFI-AVENTIS-2013SA079106

PATIENT
  Age: 45 Year
  Sex: Male
  Weight: 91.2 kg

DRUGS (3)
  1. CLOPIDOGREL BISULFATE [Suspect]
     Indication: STENT PLACEMENT
     Route: 048
     Dates: start: 20121227
  2. ACETYLSALICYLIC ACID [Suspect]
     Indication: STENT PLACEMENT
     Route: 048
     Dates: start: 20121227
  3. ATORVASTATIN [Concomitant]

REACTIONS (1)
  - Cardiac failure congestive [Recovered/Resolved]
